FAERS Safety Report 13954891 (Version 1)
Quarter: 2017Q3

REPORT INFORMATION
  Report Type: Spontaneous
  Country: US (occurrence: None)
  Receive Date: 20170911
  Receipt Date: 20170911
  Transmission Date: 20171128
  Serious: Yes (Hospitalization)
  Sender: FDA-Public Use
  Company Number: None

PATIENT
  Age: 64 Year
  Sex: Female

DRUGS (12)
  1. METHOTREXATE. [Suspect]
     Active Substance: METHOTREXATE
     Indication: RHEUMATOID ARTHRITIS
     Route: 058
     Dates: start: 20170121
  2. ASPIRIN. [Concomitant]
     Active Substance: ASPIRIN
  3. MOBIC [Concomitant]
     Active Substance: MELOXICAM
  4. XARELTO [Concomitant]
     Active Substance: RIVAROXABAN
  5. ASPIRIN ADLT [Concomitant]
  6. RABEPRAZOLE [Concomitant]
     Active Substance: RABEPRAZOLE
  7. FOLIC ACID. [Concomitant]
     Active Substance: FOLIC ACID
  8. PREDNISONE. [Concomitant]
     Active Substance: PREDNISONE
  9. ENBREL [Suspect]
     Active Substance: ETANERCEPT
     Indication: RHEUMATOID ARTHRITIS
     Route: 058
     Dates: start: 20060803
  10. LIPITOR [Concomitant]
     Active Substance: ATORVASTATIN CALCIUM
  11. METOPROL TAR [Concomitant]
  12. MULTIVITAMIN [Concomitant]
     Active Substance: VITAMINS

REACTIONS (1)
  - Ankle operation [None]

NARRATIVE: CASE EVENT DATE: 20170606
